FAERS Safety Report 8137520-2 (Version None)
Quarter: 2012Q1

REPORT INFORMATION
  Report Type: 
  Country: None (occurrence: None)
  Receive Date: 20120103
  Receipt Date: 20110907
  Transmission Date: 20120608
  Serious: No
  Sender: FDA-Public Use
  Company Number: AE-2011-001386

PATIENT
  Age: 52 Year
  Sex: Female

DRUGS (5)
  1. RIBAVIRIN [Concomitant]
  2. ALLEGRA D (ALLEGRA-D - SLOW RELEASE) [Concomitant]
  3. LYRICA [Concomitant]
  4. PEGASYS [Concomitant]
  5. INCIVEK [Suspect]
     Dosage: 2250 MG (750 MG, 1 IN 8 HR), ORAL
     Route: 048
     Dates: start: 20110728

REACTIONS (4)
  - INJECTION SITE RASH [None]
  - HAEMORRHOIDS [None]
  - ANAL PRURITUS [None]
  - PRURITUS GENERALISED [None]
